FAERS Safety Report 6994085-6 (Version None)
Quarter: 2010Q3

REPORT INFORMATION
  Report Type: 
  Country: None (occurrence: None)
  Receive Date: 20100917
  Receipt Date: 20070831
  Transmission Date: 20110219
  Serious: Yes (Other)
  Sender: FDA-Public Use
  Company Number: US-ASTRAZENECA-2006UW08060

PATIENT
  Age: 17871 Day
  Sex: Female
  Weight: 114.8 kg

DRUGS (18)
  1. SEROQUEL [Suspect]
     Indication: INSOMNIA
     Dosage: 25 MG, 400 MG, 600 MG
     Route: 048
     Dates: start: 20020101, end: 20061001
  2. SEROQUEL [Suspect]
     Indication: ANXIETY
     Dosage: 25 MG, 400 MG, 600 MG
     Route: 048
     Dates: start: 20020101, end: 20061001
  3. SEROQUEL [Suspect]
     Dosage: 25 MG - 50 MG DAILY
     Route: 048
     Dates: start: 20020416
  4. SEROQUEL [Suspect]
     Dosage: 25 MG - 50 MG DAILY
     Route: 048
     Dates: start: 20020416
  5. PROZAC [Concomitant]
     Dosage: 10 MG - 40 MG DAILY
     Dates: start: 20020715, end: 20070501
  6. VALIUM [Concomitant]
     Indication: PANIC DISORDER
     Dosage: 10 MG - 40 MG DAILY
     Dates: start: 20020416
  7. LISINOPRIL [Concomitant]
     Indication: HYPERTENSION
     Dosage: 20 MG - 30 MG DAILY
     Route: 048
     Dates: start: 20060824
  8. LISINOPRIL AND HYDROCHLOROTHIAZIDE [Concomitant]
     Dosage: STRENGTH: 20/25 MG, DOSE: 20/25 MG DAILY
     Route: 048
     Dates: start: 20040826
  9. ACTOS [Concomitant]
     Indication: DIABETES MELLITUS
     Route: 048
     Dates: start: 20070322
  10. RANITIDINE [Concomitant]
     Indication: PROPHYLAXIS AGAINST GASTROINTESTINAL ULCER
     Dosage: 150 MG- 300 MG DAILY
     Route: 048
     Dates: start: 19990218
  11. ALBUTEROL [Concomitant]
     Indication: CHRONIC OBSTRUCTIVE PULMONARY DISEASE
     Dosage: 2 PUFFS EVERY 4-6 HOURS AS NEEDED
     Dates: start: 20051212
  12. SPIRIVA [Concomitant]
     Dosage: ONE CAPSULE INHALED WITH HANDIHALER DAILY
     Dates: start: 20060424
  13. ADVAIR DISKUS 100/50 [Concomitant]
     Dosage: STRENGTH: 250/50 MCG, ONE PUFF TO TWO PUFFS DAILY
     Route: 048
     Dates: start: 20040826
  14. LEVOTHYROXINE SODIUM [Concomitant]
     Route: 048
     Dates: start: 20060419
  15. ASMACORT [Concomitant]
     Dosage: ONE PUFF TWICE A DAY
     Dates: start: 20060419
  16. METFORMIN HCL [Concomitant]
     Route: 048
     Dates: start: 20060419
  17. DIFLUCAN [Concomitant]
     Indication: VULVOVAGINAL CANDIDIASIS
     Route: 048
     Dates: start: 20070322
  18. FLAGYL [Concomitant]
     Indication: VAGINITIS BACTERIAL
     Route: 048
     Dates: start: 20060824

REACTIONS (7)
  - BLOOD TRIGLYCERIDES INCREASED [None]
  - BRONCHITIS [None]
  - DIABETES MELLITUS [None]
  - DIABETES MELLITUS INADEQUATE CONTROL [None]
  - OBESITY [None]
  - TYPE 2 DIABETES MELLITUS [None]
  - UPPER RESPIRATORY TRACT INFECTION [None]
